FAERS Safety Report 9521366 (Version 1)
Quarter: 2013Q1

REPORT INFORMATION
  Report Type: Spontaneous
  Country: US (occurrence: None)
  Receive Date: 20130305
  Receipt Date: 20130305
  Transmission Date: 20140127
  Serious: Yes (Hospitalization, Other)
  Sender: FDA-Public Use
  Company Number: 163-21880-12072528

PATIENT
  Age: 67 Year
  Sex: Female
  Weight: 63.5 kg

DRUGS (10)
  1. REVLIMID [Suspect]
     Indication: PLASMA CELL MYELOMA
     Dosage: 10 MG, 21 IN 28 Y, PO
     Route: 048
     Dates: start: 20100810
  2. HIGH DOSE STREROIDS (CORTICOSTEROIDS) [Concomitant]
  3. ASPIRIN (ACETYLSALICYLIC ACID) [Concomitant]
  4. BROMDAY (BROMFENAC SODIUM) [Concomitant]
  5. CLONDAZEPAM (CLOAZEPAM) [Concomitant]
  6. DIOVAN (VALSARTAN) [Concomitant]
  7. DUREZOL (DIFLUPREDNATE) [Concomitant]
  8. LOTREL (LOTREL) [Concomitant]
  9. TEKTURNA (ALISKIREN) [Concomitant]
  10. ZOMETA (ZOLEDRONIC ACID) [Concomitant]

REACTIONS (1)
  - Cataract [None]
